FAERS Safety Report 6677518-4 (Version None)
Quarter: 2010Q2

REPORT INFORMATION
  Report Type: 
  Country: None (occurrence: None)
  Receive Date: 20100412
  Receipt Date: 20100119
  Transmission Date: 20101027
  Serious: No
  Sender: FDA-Public Use
  Company Number: US-ALEXION-A201000063

PATIENT
  Sex: Female
  Weight: 86.621 kg

DRUGS (7)
  1. SOLIRIS [Suspect]
     Indication: PAROXYSMAL NOCTURNAL HAEMOGLOBINURIA
     Dosage: 600 MG, QWK
     Dates: start: 20080910, end: 20081001
  2. SOLIRIS [Suspect]
     Dosage: 900 MG, Q2WKS
     Dates: start: 20081008
  3. STEROIDS [Concomitant]
     Dosage: 30 MG, QD
  4. PROCHLORPERAZINE MALEATE [Concomitant]
     Dosage: 10 MG, Q6H, PRN
     Route: 048
  5. FERROUS SULFATE TAB [Concomitant]
     Dosage: UNK
     Route: 048
  6. LAMICTAL CD [Concomitant]
     Dosage: UNK
     Route: 048
  7. FOLIC ACID [Concomitant]
     Dosage: UNK
     Route: 048

REACTIONS (7)
  - BLOOD COUNT ABNORMAL [None]
  - COELIAC ARTERY STENOSIS [None]
  - EXTRASYSTOLES [None]
  - GASTROOESOPHAGEAL REFLUX DISEASE [None]
  - MESENTERIC ARTERY STENOSIS [None]
  - OESOPHAGEAL SPASM [None]
  - PALPITATIONS [None]
